FAERS Safety Report 12114181 (Version 1)
Quarter: 2016Q1

REPORT INFORMATION
  Report Type: Spontaneous
  Country: US (occurrence: US)
  Receive Date: 20160225
  Receipt Date: 20160225
  Transmission Date: 20160526
  Serious: No
  Sender: FDA-Public Use
  Company Number: US-LANTHEUS-LMI-2015-00067

PATIENT
  Age: 52 Year
  Sex: Female
  Weight: 85.3 kg

DRUGS (2)
  1. DEFINITY [Suspect]
     Active Substance: PERFLUTREN
     Indication: STRESS ECHOCARDIOGRAM
     Dosage: 1.5 ML DEFINITY DILUTED IN 8.5 ML SALINE
     Route: 040
     Dates: start: 20150206, end: 20150206
  2. BABY ASPIRIN [Concomitant]
     Active Substance: ASPIRIN

REACTIONS (4)
  - Pruritus [Unknown]
  - Swelling face [Unknown]
  - Urticaria [Unknown]
  - Musculoskeletal discomfort [Unknown]

NARRATIVE: CASE EVENT DATE: 20150206
